FAERS Safety Report 7044236 (Version 2)
Quarter: 2019Q2

REPORT INFORMATION
  Report Type: Spontaneous
  Country: FR (occurrence: FR)
  Receive Date: 20090708
  Receipt Date: 20190528
  Transmission Date: 20190711
  Serious: Yes (Hospitalization)
  Sender: FDA-Public Use
  Company Number: FR-ASTRAZENECA-2009SE03630

PATIENT
  Age: 10292 Day
  Sex: Female

DRUGS (4)
  1. CORVASAL (MOLSIDOMINE) [Suspect]
     Active Substance: MOLSIDOMINE
     Indication: INTENTIONAL OVERDOSE
     Dosage: 6.0DF ONCE/SINGLE ADMINISTRATION
     Route: 048
     Dates: start: 20071018, end: 20071018
  2. IKOREL [Suspect]
     Active Substance: NICORANDIL
     Indication: INTENTIONAL OVERDOSE
     Dosage: 4.0DF ONCE/SINGLE ADMINISTRATION
     Route: 048
     Dates: start: 20071018, end: 20071018
  3. COUMADINE [Suspect]
     Active Substance: WARFARIN SODIUM
     Indication: INTENTIONAL OVERDOSE
     Dosage: 8.0DF ONCE/SINGLE ADMINISTRATION
     Route: 048
     Dates: start: 20071018, end: 20071018
  4. TENORMINE [Suspect]
     Active Substance: ATENOLOL
     Indication: INTENTIONAL OVERDOSE
     Dosage: 3.0DF ONCE/SINGLE ADMINISTRATION
     Route: 048
     Dates: start: 20071018, end: 20071018

REACTIONS (3)
  - Bundle branch block right [Unknown]
  - Intentional overdose [Unknown]
  - Supraventricular extrasystoles [Unknown]

NARRATIVE: CASE EVENT DATE: 20071018
